FAERS Safety Report 11981163 (Version 1)
Quarter: 2016Q1

REPORT INFORMATION
  Report Type: Spontaneous
  Country: GB (occurrence: GB)
  Receive Date: 20160129
  Receipt Date: 20160129
  Transmission Date: 20160526
  Serious: Yes (Hospitalization, Congenital Anomaly)
  Sender: FDA-Public Use
  Company Number: GB-ASTRAZENECA-2010BM00079

PATIENT
  Age: 0 Day
  Sex: Female

DRUGS (4)
  1. INSULIN [Suspect]
     Active Substance: INSULIN NOS
     Route: 064
  2. LABETALOL [Suspect]
     Active Substance: LABETALOL\LABETALOL HYDROCHLORIDE
     Route: 064
  3. METFORMIN HYDROCHLORIDE. [Suspect]
     Active Substance: METFORMIN HYDROCHLORIDE
     Dosage: 500 MG THREE TIMES A DAY (NON AZ DRUG)
     Route: 064
     Dates: start: 2009, end: 20090612
  4. BYETTA [Suspect]
     Active Substance: EXENATIDE
     Route: 064
     Dates: start: 2009, end: 20090612

REACTIONS (3)
  - Premature baby [Unknown]
  - Intestinal malrotation [Recovered/Resolved with Sequelae]
  - Congenital intestinal malformation [Recovered/Resolved with Sequelae]

NARRATIVE: CASE EVENT DATE: 20091127
